FAERS Safety Report 7543330-7 (Version None)
Quarter: 2011Q2

REPORT INFORMATION
  Report Type: 
  Country: None (occurrence: None)
  Receive Date: 20110524
  Receipt Date: 20110125
  Transmission Date: 20111010
  Serious: No
  Sender: FDA-Public Use
  Company Number: 021826

PATIENT
  Sex: Female

DRUGS (1)
  1. CIMZIA [Suspect]
     Indication: CROHN'S DISEASE
     Dosage: SUBCUTANEOUS
     Route: 058
     Dates: start: 20100401, end: 20100101

REACTIONS (6)
  - SINUS CONGESTION [None]
  - ABSCESS [None]
  - NASOPHARYNGITIS [None]
  - UPPER-AIRWAY COUGH SYNDROME [None]
  - RHINORRHOEA [None]
  - COUGH [None]
